FAERS Safety Report 13335803 (Version 1)
Quarter: 2017Q1

REPORT INFORMATION
  Report Type: Report from Study
  Country: US (occurrence: US)
  Receive Date: 20170314
  Receipt Date: 20170314
  Transmission Date: 20170428
  Serious: No
  Sender: FDA-Public Use
  Company Number: US-THERATECHNOLOGIES, INC.-TH-2017-00194

PATIENT

DRUGS (1)
  1. EGRIFTA [Suspect]
     Active Substance: TESAMORELIN
     Dosage: UNK

REACTIONS (1)
  - Blood oestrogen increased [Recovering/Resolving]
